FAERS Safety Report 5688492-1 (Version None)
Quarter: 2008Q1

REPORT INFORMATION
  Report Type: 
  Country: None (occurrence: None)
  Receive Date: 20080331
  Receipt Date: 20080320
  Transmission Date: 20080703
  Serious: Yes (Hospitalization)
  Sender: FDA-Public Use
  Company Number: BE-JNJFOC-20080305294

PATIENT
  Age: 70 Year
  Sex: Male

DRUGS (1)
  1. REMICADE [Suspect]
     Indication: DRUG USE FOR UNKNOWN INDICATION
     Dosage: 2 INFUSIONS
     Route: 042

REACTIONS (3)
  - LUNG INFECTION PSEUDOMONAL [None]
  - PNEUMOCYSTIS JIROVECI INFECTION [None]
  - PNEUMONIA STAPHYLOCOCCAL [None]
